FAERS Safety Report 24779533 (Version 1)
Quarter: 2024Q4

REPORT INFORMATION
  Report Type: Spontaneous
  Country: US (occurrence: None)
  Receive Date: 20241226
  Receipt Date: 20241226
  Transmission Date: 20250114
  Serious: Yes (Hospitalization)
  Sender: Public
  Company Number: None

PATIENT
  Sex: Male

DRUGS (11)
  1. AMBRISENTAN [Suspect]
     Active Substance: AMBRISENTAN
     Dosage: FREQUENCY : DAILY;?
     Route: 048
     Dates: start: 20241121
  2. ASPIRIN CHW 81MG [Concomitant]
  3. ASPIRIN TAB 325MG [Concomitant]
  4. ATROPINE POW SULFATE [Concomitant]
  5. ATROPINE SUL INJ 1/2.5ML [Concomitant]
  6. ATROPINE SUL INJ 1 MG/ML [Concomitant]
  7. CALCIUM CARB CHW 500MG [Concomitant]
  8. CALCIUM CARB SUS 1250/5ML [Concomitant]
  9. CALCIUM CARB TAB 648MG [Concomitant]
  10. COLACE CAP 100MG [Concomitant]
  11. DIGOXIN INJ 0.25/ML [Concomitant]

REACTIONS (1)
  - Hospitalisation [None]
